FAERS Safety Report 8970181 (Version 1)
Quarter: 2012Q4

REPORT INFORMATION
  Report Type: 
  Country: US (occurrence: US)
  Receive Date: 20121217
  Receipt Date: 20121217
  Transmission Date: 20130627
  Serious: No
  Sender: FDA-Public Use
  Company Number: US-PFIZER INC-2012314928

PATIENT

DRUGS (2)
  1. SUMATRIPTAN SUCCINATE [Suspect]
     Dosage: 50 mg, UNK
  2. RELPAX [Suspect]
     Dosage: UNK

REACTIONS (2)
  - Migraine [Unknown]
  - Drug administration error [Unknown]
